FAERS Safety Report 4528616-2 (Version None)
Quarter: 2004Q4

REPORT INFORMATION
  Report Type: 
  Country: None (occurrence: None)
  Receive Date: 20041216
  Receipt Date: 20040525
  Transmission Date: 20050328
  Serious: Yes (Hospitalization)
  Sender: FDA-Public Use
  Company Number: PHNU2004DE01922

PATIENT
  Sex: Male
  Weight: 92 kg

DRUGS (2)
  1. DIOVAN [Suspect]
     Indication: HYPERTENSION
     Dosage: 80 MG/D
     Route: 048
     Dates: start: 20021007
  2. DIOVAN [Suspect]
     Dosage: 160 MG/D
     Route: 048
     Dates: start: 20040203, end: 20040416

REACTIONS (12)
  - ANAEMIA [None]
  - BLOOD CREATININE INCREASED [None]
  - CARDIOMEGALY [None]
  - DIVERTICULUM INTESTINAL [None]
  - GENERAL PHYSICAL HEALTH DETERIORATION [None]
  - GLOMERULONEPHRITIS PROLIFERATIVE [None]
  - HAEMOGLOBIN DECREASED [None]
  - HAEMORRHOIDS [None]
  - NASOPHARYNGITIS [None]
  - PERICARDIAL EFFUSION [None]
  - PNEUMONIA [None]
  - RENAL FAILURE [None]
